FAERS Safety Report 9332939 (Version 1)
Quarter: 2013Q2

REPORT INFORMATION
  Report Type: Not Available
  Country: DK (occurrence: DK)
  Receive Date: 20130606
  Receipt Date: 20130606
  Transmission Date: 20140414
  Serious: Yes (Other)
  Sender: FDA-Public Use
  Company Number: DK-ASTELLAS-2013EU004294

PATIENT
  Sex: Male

DRUGS (20)
  1. VESICARE [Suspect]
     Indication: HYPERTONIC BLADDER
     Dosage: DOSIS: 1 TABLET X 2, STYRKE: 10 MG
     Route: 048
     Dates: start: 20120922, end: 20130221
  2. PRIMPERAN [Suspect]
     Indication: NAUSEA
     Dosage: DOSIS: 1 TABLET X 2 DAGLIGT, STYRKE: 20 MG
     Route: 054
     Dates: start: 20121217, end: 20130221
  3. DOLTARD [Concomitant]
     Dosage: UNK
     Route: 065
  4. DOLTARD [Concomitant]
     Route: 065
  5. HJERTEMAGNYL [Concomitant]
     Dosage: UNK
     Route: 065
  6. HJERTEMAGNYL [Concomitant]
     Route: 065
  7. FURIX [Concomitant]
     Dosage: UNK
     Route: 065
  8. FURIX [Concomitant]
     Route: 065
  9. DICLODAN [Concomitant]
     Dosage: UNK
     Route: 065
  10. DICLODAN [Concomitant]
     Route: 065
  11. FLUANXOL [Concomitant]
     Dosage: UNK
     Route: 065
  12. FLUANXOL [Concomitant]
     Route: 065
  13. EZETROL [Concomitant]
     Dosage: UNK
     Route: 065
  14. EZETROL [Concomitant]
     Route: 065
  15. ERGOKOFFIN [Concomitant]
     Dosage: UNK
     Route: 065
  16. ERGOKOFFIN [Concomitant]
     Route: 065
  17. HALCION [Concomitant]
     Dosage: UNK
     Route: 065
  18. HALCION [Concomitant]
     Route: 065
  19. MOVICOL [Concomitant]
     Dosage: UNK
     Route: 065
  20. MOVICOL [Concomitant]
     Route: 065

REACTIONS (1)
  - Anticholinergic syndrome [Unknown]
